FAERS Safety Report 11729659 (Version 1)
Quarter: 2015Q4

REPORT INFORMATION
  Report Type: Spontaneous
  Country: US (occurrence: US)
  Receive Date: 20151110
  Receipt Date: 20151110
  Transmission Date: 20160304
  Serious: No
  Sender: FDA-Public Use
  Company Number: US-ELI_LILLY_AND_COMPANY-US201111008215

PATIENT
  Age: 74 Year
  Sex: Female

DRUGS (2)
  1. FORTEO [Suspect]
     Active Substance: TERIPARATIDE
     Indication: OSTEOPOROSIS
     Dosage: 20 UG, QD
     Route: 065
     Dates: end: 201110
  2. ANTIHYPERTENSIVES [Concomitant]
     Active Substance: UNSPECIFIED INGREDIENT
     Indication: HYPERTENSION

REACTIONS (6)
  - Chest pain [Recovered/Resolved]
  - Bone densitometry [Recovered/Resolved]
  - Surgery [Recovered/Resolved]
  - Heart alternation [Recovered/Resolved]
  - Heart valve incompetence [Recovered/Resolved]
  - Osteoporotic fracture [Recovered/Resolved]

NARRATIVE: CASE EVENT DATE: 201108
